FAERS Safety Report 5766120-4 (Version None)
Quarter: 2008Q2

REPORT INFORMATION
  Report Type: 
  Country: None (occurrence: None)
  Receive Date: 20080605
  Receipt Date: 20080522
  Transmission Date: 20081010
  Serious: Yes (Other)
  Sender: FDA-Public Use
  Company Number: S08-HND-01978-01

PATIENT
  Age: 15 Year
  Sex: Female

DRUGS (2)
  1. LEXAPRO [Suspect]
     Indication: ANXIETY
     Dosage: 5 MG QD PO
     Route: 048
     Dates: start: 20080201, end: 20080101
  2. REDUCTIL (SIBUTRAMINE HYDROCHLORIDE) [Suspect]
     Indication: OBESITY
     Dosage: 15 MG QD PO
     Route: 048
     Dates: start: 20071201, end: 20080201

REACTIONS (1)
  - ACUTE LYMPHOCYTIC LEUKAEMIA [None]
